FAERS Safety Report 15107145 (Version 10)
Quarter: 2019Q2

REPORT INFORMATION
  Report Type: Spontaneous
  Country: US (occurrence: US)
  Receive Date: 20180704
  Receipt Date: 20190408
  Transmission Date: 20190711
  Serious: Yes (Hospitalization, Other)
  Sender: FDA-Public Use
  Company Number: US-PFIZER INC-2018270585

PATIENT
  Age: 63 Year
  Sex: Female
  Weight: 113 kg

DRUGS (5)
  1. LYRICA [Suspect]
     Active Substance: PREGABALIN
     Indication: RESPIRATORY DISORDER
     Dosage: 200 MG, 2X/DAY
     Route: 048
     Dates: start: 2018, end: 2018
  2. LYRICA [Suspect]
     Active Substance: PREGABALIN
     Indication: DYSPNOEA
     Dosage: 300 MG, 2X/DAY
     Route: 048
     Dates: end: 20180716
  3. LYRICA [Suspect]
     Active Substance: PREGABALIN
     Indication: FIBROMYALGIA
     Dosage: 200 MG, UNK
     Route: 048
     Dates: start: 2017
  4. ZOLOFT [Concomitant]
     Active Substance: SERTRALINE HYDROCHLORIDE
     Dosage: 150 MG, DAILY, (1 1/2 (ONE AND A HALF)
     Route: 048
  5. LYRICA [Suspect]
     Active Substance: PREGABALIN
     Dosage: 100 MG, 2X/DAY
     Route: 048
     Dates: start: 2018

REACTIONS (11)
  - Withdrawal syndrome [Unknown]
  - Hyperhidrosis [Unknown]
  - Pruritus [Unknown]
  - Dyspnoea [Not Recovered/Not Resolved]
  - Apparent death [Unknown]
  - Cough [Unknown]
  - Spondylitis [Unknown]
  - Swelling [Unknown]
  - Rash [Unknown]
  - Malaise [Unknown]
  - Pain [Unknown]
